FAERS Safety Report 4855390-2 (Version None)
Quarter: 2005Q4

REPORT INFORMATION
  Report Type: 
  Country: None (occurrence: None)
  Receive Date: 20051125
  Receipt Date: 20050217
  Transmission Date: 20060501
  Serious: Yes (Disabling)
  Sender: FDA-Public Use
  Company Number: US-JNJFOC-20050106849

PATIENT
  Sex: Female

DRUGS (1)
  1. LEVAQUIN [Suspect]
     Indication: PNEUMONIA
     Dates: start: 20040601

REACTIONS (6)
  - ANXIETY [None]
  - ARTHRALGIA [None]
  - DEPRESSION [None]
  - HYPOAESTHESIA [None]
  - JOINT SWELLING [None]
  - PARAESTHESIA [None]
